FAERS Safety Report 16000551 (Version 1)
Quarter: 2019Q1

REPORT INFORMATION
  Report Type: Report from Study
  Country: JP (occurrence: JP)
  Receive Date: 20190225
  Receipt Date: 20190225
  Transmission Date: 20190418
  Serious: Yes (Hospitalization, Other)
  Sender: FDA-Public Use
  Company Number: PHJP2016JP038179

PATIENT
  Age: 70 Year
  Sex: Male

DRUGS (4)
  1. MEKINIST [Suspect]
     Active Substance: TRAMETINIB DIMETHYL SULFOXIDE
     Indication: MALIGNANT MELANOMA STAGE IV
     Dosage: 2 MG, QD
     Route: 048
     Dates: start: 20161223
  2. MEKINIST [Suspect]
     Active Substance: TRAMETINIB DIMETHYL SULFOXIDE
     Indication: BRAF GENE MUTATION
  3. TAFINLAR [Suspect]
     Active Substance: DABRAFENIB MESYLATE
     Indication: MALIGNANT MELANOMA STAGE IV
     Dosage: 300 MG, QD
     Route: 048
     Dates: start: 20161223
  4. TAFINLAR [Suspect]
     Active Substance: DABRAFENIB MESYLATE
     Indication: BRAF GENE MUTATION

REACTIONS (8)
  - Anaemia [Not Recovered/Not Resolved]
  - Dehydration [Unknown]
  - Hyperuricaemia [Not Recovered/Not Resolved]
  - Pyrexia [Recovered/Resolved]
  - Rectal haemorrhage [Unknown]
  - Hyperkalaemia [Recovered/Resolved]
  - Constipation [Not Recovered/Not Resolved]
  - Rectal injury [Unknown]

NARRATIVE: CASE EVENT DATE: 20161226
